FAERS Safety Report 11002928 (Version 3)
Quarter: 2015Q2

REPORT INFORMATION
  Report Type: Report from Study
  Country: PL (occurrence: PL)
  Receive Date: 20150408
  Receipt Date: 20150622
  Transmission Date: 20150821
  Serious: Yes (Other)
  Sender: FDA-Public Use
  Company Number: PHHY2015PL038254

PATIENT
  Age: 75 Year
  Sex: Female

DRUGS (5)
  1. BISOCARD [Concomitant]
     Active Substance: BISOPROLOL
     Indication: HYPERTENSION
     Route: 065
  2. INSULIN [Concomitant]
     Active Substance: INSULIN NOS
     Indication: HYPERGLYCAEMIA
  3. TASIGNA [Suspect]
     Active Substance: NILOTINIB
     Indication: PRODUCT USED FOR UNKNOWN INDICATION
     Dosage: 400 MG, BID
     Route: 065
     Dates: start: 201308
  4. POLAPRIL [Concomitant]
     Indication: HYPERTENSION
     Route: 065
  5. INSULIN [Concomitant]
     Active Substance: INSULIN NOS
     Indication: TYPE 2 DIABETES MELLITUS
     Route: 065

REACTIONS (8)
  - Acute myocardial infarction [Unknown]
  - Angina pectoris [Unknown]
  - Glycosylated haemoglobin increased [Unknown]
  - Chest discomfort [Unknown]
  - Angiopathy [Unknown]
  - Fatigue [Unknown]
  - Restlessness [Unknown]
  - Hyperglycaemia [Unknown]

NARRATIVE: CASE EVENT DATE: 20140609
